FAERS Safety Report 5742772-X (Version None)
Quarter: 2008Q2

REPORT INFORMATION
  Report Type: 
  Country: None (occurrence: None)
  Receive Date: 20080519
  Receipt Date: 20080507
  Transmission Date: 20081010
  Serious: Yes (Life-Threatening, Other)
  Sender: FDA-Public Use
  Company Number: BE-MERCK-0805BEL00006

PATIENT
  Age: 13 Year
  Sex: Female

DRUGS (5)
  1. CANCIDAS [Suspect]
     Indication: PYREXIA
     Route: 041
  2. AMIKACIN [Concomitant]
     Indication: PYREXIA
     Route: 041
  3. CEFTAZIDIME [Concomitant]
     Indication: PYREXIA
     Route: 042
  4. VANCOMYCIN [Concomitant]
     Indication: PYREXIA
     Route: 041
  5. MEROPENEM [Concomitant]
     Route: 041

REACTIONS (4)
  - CONVULSION [None]
  - DRUG INEFFECTIVE [None]
  - MYOCARDITIS MYCOTIC [None]
  - PNEUMONIA [None]
